FAERS Safety Report 8922626 (Version 2)
Quarter: 2012Q4

REPORT INFORMATION
  Report Type: 
  Country: US (occurrence: US)
  Receive Date: 20121123
  Receipt Date: 20121217
  Transmission Date: 20130627
  Serious: Yes (Other)
  Sender: FDA-Public Use
  Company Number: US-PFIZER INC-2012293963

PATIENT
  Age: 61 Year
  Sex: Female
  Weight: 76.64 kg

DRUGS (3)
  1. ARTHROTEC [Suspect]
     Indication: KNEE ARTHRITIS
     Dosage: 200ug/75mg , 2x/day
     Dates: start: 201210
  2. ARTHROTEC [Suspect]
     Indication: JOINT DISORDER
  3. TRAVATAN Z [Concomitant]
     Indication: GLAUCOMA
     Dosage: 1drop in each eye, daily
     Route: 047

REACTIONS (5)
  - Coeliac disease [Not Recovered/Not Resolved]
  - Malaise [Unknown]
  - Diarrhoea [Not Recovered/Not Resolved]
  - Rectal discharge [Not Recovered/Not Resolved]
  - Nausea [Not Recovered/Not Resolved]
